FAERS Safety Report 18492061 (Version 8)
Quarter: 2021Q1

REPORT INFORMATION
  Report Type: Spontaneous
  Country: US (occurrence: US)
  Receive Date: 20201111
  Receipt Date: 20210226
  Transmission Date: 20210419
  Serious: Yes (Other)
  Sender: FDA-Public Use
  Company Number: US-PFIZER INC-2020439089

PATIENT
  Age: 51 Year
  Sex: Female

DRUGS (2)
  1. IBRANCE [Suspect]
     Active Substance: PALBOCICLIB
     Dosage: 125 MG
     Dates: start: 20201104
  2. IBRANCE [Suspect]
     Active Substance: PALBOCICLIB
     Dosage: 125 MG
     Dates: start: 20201111

REACTIONS (16)
  - Anosmia [Unknown]
  - Mental impairment [Recovering/Resolving]
  - Pyrexia [Recovered/Resolved]
  - Speech disorder [Recovering/Resolving]
  - Pruritus [Not Recovered/Not Resolved]
  - Dysgeusia [Unknown]
  - Fatigue [Recovered/Resolved]
  - Nausea [Unknown]
  - Blood count abnormal [Unknown]
  - Dizziness [Recovered/Resolved]
  - Memory impairment [Not Recovered/Not Resolved]
  - Abdominal discomfort [Unknown]
  - Ageusia [Unknown]
  - Cough [Recovered/Resolved]
  - Somnolence [Unknown]
  - Taste disorder [Not Recovered/Not Resolved]

NARRATIVE: CASE EVENT DATE: 2020
